FAERS Safety Report 8583661-5 (Version None)
Quarter: 2012Q3

REPORT INFORMATION
  Report Type: 
  Country: None (occurrence: None)
  Receive Date: 20120809
  Receipt Date: 20120703
  Transmission Date: 20120928
  Serious: Yes (Other)
  Sender: FDA-Public Use
  Company Number: US-009507513-1207USA000634

PATIENT

DRUGS (2)
  1. NOXAFIL [Suspect]
     Indication: PROPHYLAXIS
  2. VINCRISTINE SULFATE [Interacting]
     Indication: PROPHYLAXIS

REACTIONS (14)
  - ABASIA [None]
  - ABDOMINAL PAIN [None]
  - INAPPROPRIATE ANTIDIURETIC HORMONE SECRETION [None]
  - AREFLEXIA [None]
  - NEUROTOXICITY [None]
  - CONSTIPATION [None]
  - AGITATION [None]
  - CONVULSION [None]
  - MUSCULAR WEAKNESS [None]
  - DRUG INTERACTION [None]
  - BRAIN OEDEMA [None]
  - PERONEAL NERVE PALSY [None]
  - HYPONATRAEMIA [None]
  - PARAESTHESIA [None]
